FAERS Safety Report 4828225-1 (Version None)
Quarter: 2005Q4

REPORT INFORMATION
  Report Type: 
  Country: None (occurrence: None)
  Receive Date: 20051115
  Receipt Date: 20041123
  Transmission Date: 20060501
  Serious: No
  Sender: FDA-Public Use
  Company Number: US-BRISTOL-MYERS SQUIBB COMPANY-12774337

PATIENT
  Age: 52 Year
  Sex: Male
  Weight: 59 kg

DRUGS (3)
  1. SUSTIVA [Suspect]
     Indication: HIV INFECTION
     Route: 048
     Dates: start: 20041116
  2. ZERIT [Concomitant]
  3. EPIVIR [Concomitant]

REACTIONS (2)
  - DIZZINESS [None]
  - NAUSEA [None]
